FAERS Safety Report 6234611-8 (Version None)
Quarter: 2009Q2

REPORT INFORMATION
  Report Type: 
  Country: None (occurrence: None)
  Receive Date: 20090618
  Receipt Date: 20090608
  Transmission Date: 20091009
  Serious: Yes (Hospitalization, Other)
  Sender: FDA-Public Use
  Company Number: US-AMGEN-QUU350692

PATIENT
  Sex: Female

DRUGS (2)
  1. ENBREL [Suspect]
     Indication: PSORIATIC ARTHROPATHY
     Route: 058
  2. ENBREL [Suspect]
     Indication: PSORIASIS

REACTIONS (26)
  - ANXIETY [None]
  - CARPAL TUNNEL DECOMPRESSION [None]
  - CERVIX CARCINOMA [None]
  - DRUG INEFFECTIVE [None]
  - ENDOMETRIOSIS [None]
  - EXOSTOSIS [None]
  - FIBROMYALGIA [None]
  - HOT FLUSH [None]
  - HYPOAESTHESIA [None]
  - INADEQUATE ANALGESIA [None]
  - INTERVERTEBRAL DISC PROTRUSION [None]
  - JOINT INSTABILITY [None]
  - JOINT SPRAIN [None]
  - MEMORY IMPAIRMENT [None]
  - MENISCUS LESION [None]
  - MENOPAUSE [None]
  - MUSCULOSKELETAL STIFFNESS [None]
  - OPEN WOUND [None]
  - OVARIAN MASS [None]
  - PARAESTHESIA [None]
  - PITUITARY TUMOUR [None]
  - PROCEDURAL PAIN [None]
  - PSORIATIC ARTHROPATHY [None]
  - SCIATICA [None]
  - SKIN EXFOLIATION [None]
  - WOUND SECRETION [None]
